FAERS Safety Report 22249082 (Version 1)
Quarter: 2023Q2

REPORT INFORMATION
  Report Type: Spontaneous
  Country: US (occurrence: US)
  Receive Date: 20230425
  Receipt Date: 20230425
  Transmission Date: 20230721
  Serious: Yes (Other)
  Sender: FDA-Public Use
  Company Number: US-SANOFI-01584656

PATIENT
  Sex: Female

DRUGS (1)
  1. DULCOLAX NOS [Suspect]
     Active Substance: BISACODYL OR DOCUSATE SODIUM
     Indication: Colonoscopy
     Dosage: 2 DULCOLAX PILLS AT 8 PM AT NIGHT
     Route: 065

REACTIONS (6)
  - Loss of consciousness [Unknown]
  - Contusion [Unknown]
  - Fall [Unknown]
  - Dysarthria [Unknown]
  - Movement disorder [Unknown]
  - Depression [Unknown]
